FAERS Safety Report 7208802-3 (Version None)
Quarter: 2011Q1

REPORT INFORMATION
  Report Type: 
  Country: None (occurrence: None)
  Receive Date: 20110104
  Receipt Date: 20101223
  Transmission Date: 20110831
  Serious: Yes (Hospitalization, Disabling)
  Sender: FDA-Public Use
  Company Number: US-SANOFI-AVENTIS-2010SA048156

PATIENT
  Age: 81 Year
  Sex: Male

DRUGS (12)
  1. PLAVIX [Suspect]
     Indication: TRANSIENT ISCHAEMIC ATTACK
     Route: 048
     Dates: start: 20020101, end: 20100801
  2. CYMBALTA [Concomitant]
     Indication: POST-TRAUMATIC STRESS DISORDER
     Route: 048
     Dates: start: 20050101
  3. PLAVIX [Suspect]
     Indication: CORONARY ARTERY DISEASE
     Route: 048
     Dates: start: 20020101, end: 20100801
  4. LANTUS [Suspect]
     Dosage: DOSE:6 UNIT(S)
     Route: 058
     Dates: start: 20100927
  5. COREG [Concomitant]
     Indication: CORONARY ARTERY DISEASE
     Route: 048
     Dates: start: 20050101
  6. LANTUS [Suspect]
     Dosage: DOSE:12 UNIT(S)
     Route: 058
     Dates: start: 20020101, end: 20100924
  7. COREG [Concomitant]
     Indication: CARDIOMYOPATHY
     Route: 048
     Dates: start: 20050101
  8. ALTACE [Concomitant]
     Indication: CORONARY ARTERY DISEASE
     Route: 048
     Dates: start: 20020101
  9. PREDNISONE [Concomitant]
     Indication: POLYMYALGIA RHEUMATICA
     Route: 048
     Dates: start: 20090101
  10. ALTACE [Concomitant]
     Indication: CARDIOMYOPATHY
     Route: 048
     Dates: start: 20020101
  11. TESTOSTERONE [Concomitant]
     Indication: HYPOGONADISM
     Route: 003
     Dates: start: 20020101
  12. ZANTAC [Concomitant]
     Route: 048
     Dates: start: 20090101

REACTIONS (14)
  - SUBDURAL HAEMATOMA [None]
  - GAIT DISTURBANCE [None]
  - ASTHENIA [None]
  - HEADACHE [None]
  - APHASIA [None]
  - MEMORY IMPAIRMENT [None]
  - HYPOGLYCAEMIC UNCONSCIOUSNESS [None]
  - MENTAL STATUS CHANGES [None]
  - BALANCE DISORDER [None]
  - PNEUMONIA ASPIRATION [None]
  - MUSCULAR WEAKNESS [None]
  - LETHARGY [None]
  - BLEEDING TIME PROLONGED [None]
  - CONVULSION [None]
